FAERS Safety Report 8791680 (Version 6)
Quarter: 2019Q1

REPORT INFORMATION
  Report Type: Spontaneous
  Country: JP (occurrence: JP)
  Receive Date: 20120918
  Receipt Date: 20190327
  Transmission Date: 20190418
  Serious: Yes (Other)
  Sender: FDA-Public Use
  Company Number: PHHY2012JP079577

PATIENT
  Age: 55 Year
  Sex: Female
  Weight: 52 kg

DRUGS (3)
  1. HERCEPTIN [Suspect]
     Active Substance: TRASTUZUMAB
     Indication: METASTASES TO BONE
     Dosage: UNK
     Route: 065
     Dates: start: 2005
  2. ZOMETA [Suspect]
     Active Substance: ZOLEDRONIC ACID
     Dosage: 4 MG, QMO
     Route: 041
  3. ZOMETA [Suspect]
     Active Substance: ZOLEDRONIC ACID
     Indication: METASTASES TO BONE
     Dosage: 4 MG, BIW
     Route: 041
     Dates: start: 200512, end: 200907

REACTIONS (25)
  - Renal tubular acidosis [Recovering/Resolving]
  - Blood creatinine increased [Unknown]
  - Renal glycosuria [Unknown]
  - Globulinuria [Unknown]
  - Aminoaciduria [Recovering/Resolving]
  - Tubulointerstitial nephritis [Recovering/Resolving]
  - Blood pressure decreased [Recovering/Resolving]
  - Hypocalcaemia [Unknown]
  - Renal impairment [Unknown]
  - Metabolic acidosis [Unknown]
  - Hypouricaemia [Unknown]
  - Ammonia increased [Unknown]
  - Polyuria [Unknown]
  - Renal tubular dysfunction [Unknown]
  - Glomerular filtration rate decreased [Unknown]
  - Polydipsia [Unknown]
  - Oedema [Unknown]
  - Fanconi syndrome [Unknown]
  - Hypokalaemia [Unknown]
  - Hypophosphataemia [Unknown]
  - Urine phosphorus increased [Unknown]
  - Albuminuria [Unknown]
  - Dehydration [Unknown]
  - Heart rate decreased [Recovering/Resolving]
  - Dry mouth [Unknown]

NARRATIVE: CASE EVENT DATE: 2006
